FAERS Safety Report 9649506 (Version 1)
Quarter: 2013Q4

REPORT INFORMATION
  Report Type: Spontaneous
  Country: FR (occurrence: FR)
  Receive Date: 20131028
  Receipt Date: 20131028
  Transmission Date: 20140711
  Serious: Yes (Death)
  Sender: FDA-Public Use
  Company Number: PHHY2013FR121175

PATIENT
  Age: 81 Year
  Sex: Female

DRUGS (11)
  1. TASIGNA [Suspect]
     Indication: CHRONIC MYELOID LEUKAEMIA
     Dosage: 150 MG, BID
     Route: 048
     Dates: start: 2010, end: 20130810
  2. KARDEGIC [Concomitant]
     Dosage: 75 MG, QD
  3. ISOPTINE [Concomitant]
     Dosage: 240 MG, QD
  4. CRESTOR [Concomitant]
     Dosage: 5 MG, QD
  5. PREVISCAN [Concomitant]
  6. ALDACTONE [Concomitant]
     Dosage: 50 MG, QD
  7. ESIDREX [Concomitant]
     Dosage: 25 MG, QD
  8. LEVOTHYROX [Concomitant]
     Dosage: 75 UG, QD
  9. HAAS-MAGNESIUM [Concomitant]
  10. PARIET [Concomitant]
     Dosage: 10 MG, QD
  11. UVEDOSE [Concomitant]
     Dosage: 2.5 MG, Q3MO

REACTIONS (3)
  - Intestinal ischaemia [Fatal]
  - Hepatic failure [Fatal]
  - Renal failure [Fatal]
